FAERS Safety Report 6287916-9 (Version None)
Quarter: 2009Q3

REPORT INFORMATION
  Report Type: 
  Country: None (occurrence: None)
  Receive Date: 20090727
  Receipt Date: 20090727
  Transmission Date: 20100115
  Serious: Yes (Hospitalization, Disabling)
  Sender: FDA-Public Use
  Company Number: None

PATIENT
  Sex: Male
  Weight: 90.6 kg

DRUGS (2)
  1. METHOTREXATE 1G/ 40ML HOSPIRA [Suspect]
     Indication: DIFFUSE LARGE B-CELL LYMPHOMA
     Dosage: 17 GRAMS ONCE IV BOLUS
     Route: 040
     Dates: start: 20090707
  2. METHOTREXAT 1G/40ML HOSPIRA [Suspect]

REACTIONS (2)
  - DRUG CLEARANCE DECREASED [None]
  - DRUG TOXICITY [None]
